FAERS Safety Report 7605043-2 (Version None)
Quarter: 2011Q3

REPORT INFORMATION
  Report Type: 
  Country: None (occurrence: None)
  Receive Date: 20110713
  Receipt Date: 20110704
  Transmission Date: 20111222
  Serious: Yes (Death, Hospitalization)
  Sender: FDA-Public Use
  Company Number: AU-BRISTOL-MYERS SQUIBB COMPANY-15874928

PATIENT
  Age: 63 Year
  Sex: Male
  Weight: 81 kg

DRUGS (8)
  1. CISPLATIN [Suspect]
     Indication: OESOPHAGEAL CARCINOMA
     Dosage: DAY 1-5,DAY 29-33. MOST RECENT INF: 10OCT08
     Route: 042
     Dates: start: 20080908
  2. NEUPOGEN [Concomitant]
     Dates: start: 20081012, end: 20081020
  3. CETUXIMAB [Suspect]
     Indication: OESOPHAGEAL CARCINOMA
     Dosage: 08-08SEP2008(400MG/M2);TEMP DISCONTINUED ON 22SEP2008. UNK DATE-06OCT08, 250MG/M2
     Route: 042
     Dates: start: 20080808
  4. PANTOPRAZOLE SODIUM [Concomitant]
     Dates: start: 20080821, end: 20081104
  5. TAXOTERE [Suspect]
     Indication: OESOPHAGEAL CARCINOMA
     Dosage: DAY 1 AND DAY 29.MOST RECENT INF: 06OCT08
     Route: 042
     Dates: start: 20080908
  6. FLUOROURACIL [Suspect]
     Indication: OESOPHAGEAL CARCINOMA
     Dosage: MOST RECENT INFUSION ON 10OCT2008
     Route: 042
     Dates: start: 20080908
  7. AMLODIPINE [Concomitant]
     Dosage: UNTIL 16SEP08. UNK DATE TO 04NOV08
     Dates: start: 20080821
  8. NAVOBAN [Concomitant]
     Dates: start: 20080903, end: 20080917

REACTIONS (2)
  - SEPSIS [None]
  - NEUTROPENIA [None]
